FAERS Safety Report 5291303-X (Version None)
Quarter: 2007Q2

REPORT INFORMATION
  Report Type: 
  Country: None (occurrence: None)
  Receive Date: 20070409
  Receipt Date: 20070330
  Transmission Date: 20071010
  Serious: Yes (Other)
  Sender: FDA-Public Use
  Company Number: CZ-PFIZER INC-2007026091

PATIENT
  Sex: Male
  Weight: 61 kg

DRUGS (8)
  1. CHAMPIX [Suspect]
     Indication: SMOKING CESSATION THERAPY
     Route: 048
  2. CARVEDILOL [Concomitant]
  3. TRITACE [Concomitant]
  4. DIGOXIN [Concomitant]
  5. FURON [Concomitant]
  6. VEROSPIRON [Concomitant]
  7. GASEC [Concomitant]
  8. DEGAN [Concomitant]

REACTIONS (1)
  - LOSS OF CONSCIOUSNESS [None]
